FAERS Safety Report 15407471 (Version 1)
Quarter: 2018Q3

REPORT INFORMATION
  Report Type: Spontaneous
  Country: US (occurrence: US)
  Receive Date: 20180920
  Receipt Date: 20180920
  Transmission Date: 20181010
  Serious: No
  Sender: FDA-Public Use
  Company Number: US-AMARIN PHARMA, INC.-2017AMR000299

PATIENT
  Age: 60 Year
  Sex: Male
  Weight: 89.89 kg

DRUGS (3)
  1. INSULIN?SHORT ACTING [Concomitant]
     Indication: DIABETES MELLITUS
  2. VASCEPA [Suspect]
     Active Substance: ICOSAPENT ETHYL
     Indication: DIABETES MELLITUS
     Route: 048
     Dates: start: 201711
  3. INSULIN?LONG ACTING [Concomitant]
     Indication: DIABETES MELLITUS

REACTIONS (4)
  - Overdose [Not Recovered/Not Resolved]
  - Acne [Not Recovered/Not Resolved]
  - Drug dose omission [Not Recovered/Not Resolved]
  - Off label use [Not Recovered/Not Resolved]

NARRATIVE: CASE EVENT DATE: 2017
